FAERS Safety Report 23867917 (Version 2)
Quarter: 2024Q3

REPORT INFORMATION
  Report Type: Spontaneous
  Country: JP (occurrence: JP)
  Receive Date: 20240517
  Receipt Date: 20240805
  Transmission Date: 20241017
  Serious: No
  Sender: ELI LILLY AND CO
  Company Number: JP-ELI_LILLY_AND_COMPANY-JP202405004955

PATIENT
  Age: 76 Year
  Sex: Female
  Weight: 42.7 kg

DRUGS (6)
  1. CYRAMZA [Suspect]
     Active Substance: RAMUCIRUMAB
     Indication: Lung adenocarcinoma stage IV
     Dosage: 10 MG/KG, ONCE EVERY TWO WEEKS, TWO TIMES ON/ ONE TIME OFF
     Route: 041
     Dates: start: 20231025
  2. ERLOTINIB HYDROCHLORIDE [Suspect]
     Active Substance: ERLOTINIB HYDROCHLORIDE
     Indication: Lung adenocarcinoma stage IV
     Dosage: 100 MG, DAILY
     Route: 048
     Dates: start: 20231025
  3. MINOCYCLINE HYDROCHLORIDE [Concomitant]
     Active Substance: MINOCYCLINE HYDROCHLORIDE
     Indication: Chemotherapy side effect prophylaxis
     Dosage: 100 MG, BID
     Dates: start: 20231025
  4. AMLODIPINE [Concomitant]
     Active Substance: AMLODIPINE BESYLATE
     Indication: Hypertension
     Dosage: 5 MG, DAILY
  5. ESOMEPRAZOLE [Concomitant]
     Active Substance: ESOMEPRAZOLE
     Dosage: 20 MG, DAILY
  6. COIX SEED EXTRACT [COIX LACRYMA-JOBI SEED EXT [Concomitant]
     Dosage: 9 DOSAGE FORM
     Route: 048

REACTIONS (3)
  - Amylase increased [Recovered/Resolved]
  - Skin disorder [Recovering/Resolving]
  - Hypoaesthesia [Unknown]

NARRATIVE: CASE EVENT DATE: 20231122
